FAERS Safety Report 5674322-0 (Version None)
Quarter: 2008Q2

REPORT INFORMATION
  Report Type: 
  Country: None (occurrence: None)
  Receive Date: 20080229
  Receipt Date: 20070928
  Transmission Date: 20081010
  Serious: Yes (Other)
  Sender: FDA-Public Use
  Company Number: 247548

PATIENT
  Age: 53 Year
  Sex: Female

DRUGS (4)
  1. NUTROPIN AQ [Suspect]
     Indication: GROWTH HORMONE DEFICIENCY
     Dosage: 1 MG, QD, SUBCUTANEOUS
     Route: 058
     Dates: start: 20070222
  2. AVANDIA [Concomitant]
  3. PHENTERMINE [Concomitant]
  4. BYETTA [Concomitant]

REACTIONS (2)
  - ARTHROPATHY [None]
  - HYPERGLYCAEMIA [None]
